FAERS Safety Report 6522866-1 (Version None)
Quarter: 2009Q4

REPORT INFORMATION
  Report Type: 
  Country: None (occurrence: None)
  Receive Date: 20091222
  Receipt Date: 20091207
  Transmission Date: 20100525
  Serious: Yes (Other)
  Sender: FDA-Public Use
  Company Number: 310002N09GRC

PATIENT
  Age: 36 Year
  Sex: Female

DRUGS (3)
  1. GONAL-F [Suspect]
     Indication: INFERTILITY
     Dosage: 150 IU, DAYS, SUBCUTANEOUS 225 IU, SUBCUTANEOUS
     Route: 058
     Dates: start: 20090304, end: 20090309
  2. GONAL-F [Suspect]
     Indication: INFERTILITY
     Dosage: 150 IU, DAYS, SUBCUTANEOUS 225 IU, SUBCUTANEOUS
     Route: 058
     Dates: start: 20090304, end: 20090309
  3. T4 (LEVOTHYROXINE SODIUM) [Concomitant]

REACTIONS (4)
  - CAESAREAN SECTION [None]
  - DRUG EXPOSURE BEFORE PREGNANCY [None]
  - HEPATIC ENZYME INCREASED [None]
  - PREMATURE LABOUR [None]
